FAERS Safety Report 12690963 (Version 1)
Quarter: 2016Q3

REPORT INFORMATION
  Report Type: Report from Study
  Country: GB (occurrence: GB)
  Receive Date: 20160826
  Receipt Date: 20160826
  Transmission Date: 20161109
  Serious: Yes (Death, Hospitalization)
  Sender: FDA-Public Use
  Company Number: GB-ABBVIE-13P-167-1041915-00

PATIENT
  Sex: Male
  Weight: 74 kg

DRUGS (1)
  1. HUMIRA [Suspect]
     Active Substance: ADALIMUMAB
     Indication: PSORIASIS
     Route: 058
     Dates: start: 20090902

REACTIONS (8)
  - Cerebral haemorrhage [Fatal]
  - Cerebrovascular disorder [Fatal]
  - Essential hypertension [Unknown]
  - Pneumonia [Fatal]
  - Abnormal behaviour [Unknown]
  - Head injury [Unknown]
  - Fall [Unknown]
  - Mental disorder [Unknown]
